FAERS Safety Report 4836283-3 (Version None)
Quarter: 2005Q4

REPORT INFORMATION
  Report Type: 
  Country: None (occurrence: None)
  Receive Date: 20051121
  Receipt Date: 20051121
  Transmission Date: 20060501
  Serious: Yes (Life-Threatening, Hospitalization, Disabling)
  Sender: FDA-Public Use
  Company Number: None

PATIENT
  Age: 70 Year
  Sex: Female
  Weight: 91 kg

DRUGS (2)
  1. DEPODUR [Suspect]
     Indication: HIP ARTHROPLASTY
     Dosage: 8 MG   ONCE   EPIDURAL
     Route: 008
     Dates: start: 20051012, end: 20051012
  2. MORPHINE [Concomitant]

REACTIONS (5)
  - BREATH SOUNDS ABNORMAL [None]
  - OXYGEN SATURATION DECREASED [None]
  - SOMNOLENCE [None]
  - URINE OUTPUT DECREASED [None]
  - WHEEZING [None]
